FAERS Safety Report 17982330 (Version 1)
Quarter: 2020Q3

REPORT INFORMATION
  Report Type: Spontaneous
  Country: US (occurrence: US)
  Receive Date: 20200702
  Receipt Date: 20200702
  Transmission Date: 20201103
  Serious: No
  Sender: FDA-Public Use
  Company Number: None

PATIENT
  Age: 50 Year
  Sex: Female
  Weight: 53.1 kg

DRUGS (1)
  1. NEXT ADVANCED ANTIBACTERIAL HAND SANITIZER [Suspect]
     Active Substance: ALCOHOL
     Indication: INFECTION PROPHYLAXIS
     Route: 061
     Dates: start: 20200622, end: 20200622

REACTIONS (4)
  - Gastric disorder [None]
  - Headache [None]
  - Nausea [None]
  - Product odour abnormal [None]

NARRATIVE: CASE EVENT DATE: 20200622
